FAERS Safety Report 8571236 (Version 2)
Quarter: 2013Q1

REPORT INFORMATION
  Report Type: Spontaneous
  Country: US (occurrence: US)
  Receive Date: 20120521
  Receipt Date: 20130222
  Transmission Date: 20140127
  Serious: Yes (Hospitalization)
  Sender: FDA-Public Use
  Company Number: US-TEVA-324176USA

PATIENT
  Age: 67 Year
  Sex: Female

DRUGS (17)
  1. TREANDA [Suspect]
     Indication: CHRONIC LYMPHOCYTIC LEUKAEMIA
     Route: 042
  2. METFORMIN [Concomitant]
  3. NICOTINIC ACID [Concomitant]
  4. ATORVASTATIN CALCIUM [Concomitant]
  5. LISINOPRIL [Concomitant]
  6. METHOCARBAMOL [Concomitant]
  7. ALLOPURINOL [Concomitant]
  8. HYDROCHLOROTHIAZIDE [Concomitant]
  9. FENOFIBRATE [Concomitant]
  10. SERTRALINE [Concomitant]
  11. GINKGO BILOBA [Concomitant]
  12. FISH OIL [Concomitant]
  13. ASCORBIC ACID [Concomitant]
  14. ACETYLSALICYLIC ACID [Concomitant]
  15. POTASSIUM CHLORIDE [Concomitant]
  16. FLUTICASONE PROPIONATE [Concomitant]
  17. LORATADINE [Concomitant]

REACTIONS (1)
  - Pyrexia [Recovered/Resolved]
